FAERS Safety Report 7957445-2 (Version None)
Quarter: 2011Q4

REPORT INFORMATION
  Report Type: 
  Country: None (occurrence: None)
  Receive Date: 20111205
  Receipt Date: 20111129
  Transmission Date: 20120403
  Serious: No
  Sender: FDA-Public Use
  Company Number: US-PFIZER INC-2011292787

PATIENT
  Sex: Male
  Weight: 61.224 kg

DRUGS (1)
  1. VIAGRA [Suspect]
     Indication: PROSTATIC OPERATION
     Dosage: 100 MG (SPLITTING INTO HALF) 2-3 TIMES/WEEK
     Route: 048

REACTIONS (1)
  - DRUG INEFFECTIVE [None]
